FAERS Safety Report 7445376-6 (Version None)
Quarter: 2011Q2

REPORT INFORMATION
  Report Type: 
  Country: None (occurrence: None)
  Receive Date: 20110429
  Receipt Date: 20100920
  Transmission Date: 20111010
  Serious: No
  Sender: FDA-Public Use
  Company Number: A0882091A

PATIENT
  Age: 9 Year
  Sex: Male

DRUGS (2)
  1. ZOFRAN [Suspect]
     Indication: VOMITING
     Dosage: 4MG SINGLE DOSE
     Route: 048
     Dates: start: 20100919, end: 20100919
  2. DETROL LA [Concomitant]

REACTIONS (2)
  - ABDOMINAL PAIN UPPER [None]
  - INSOMNIA [None]
